FAERS Safety Report 7476012-0 (Version None)
Quarter: 2011Q2

REPORT INFORMATION
  Report Type: 
  Country: None (occurrence: None)
  Receive Date: 20110512
  Receipt Date: 20110429
  Transmission Date: 20111010
  Serious: Yes (Other)
  Sender: FDA-Public Use
  Company Number: CA-JNJFOC-20100705531

PATIENT
  Sex: Male
  Weight: 63 kg

DRUGS (7)
  1. REMICADE [Suspect]
     Indication: CROHN'S DISEASE
     Dosage: 18 INFUSIONS ON UNSPECIFIED DATES
     Route: 042
  2. REMICADE [Suspect]
     Route: 042
  3. PANTOLOC [Concomitant]
     Route: 048
  4. MULTI-VITAMINS [Concomitant]
     Route: 048
  5. SYMBICORT [Concomitant]
     Dosage: TWO PUFFS BID
  6. IMURAN [Concomitant]
     Route: 048
  7. TUMS [Concomitant]
     Indication: BLOOD CALCIUM
     Dosage: 3-5 TABS DAILY
     Route: 048

REACTIONS (2)
  - OTORRHOEA [None]
  - OTOSCLEROSIS [None]
